FAERS Safety Report 4784410-9 (Version None)
Quarter: 2005Q3

REPORT INFORMATION
  Report Type: 
  Country: None (occurrence: None)
  Receive Date: 20050930
  Receipt Date: 20041213
  Transmission Date: 20060218
  Serious: Yes (Death, Hospitalization, Other)
  Sender: FDA-Public Use
  Company Number: DE-ABBOTT-04P-062-0283459-00

PATIENT
  Sex: Female

DRUGS (14)
  1. HUMIRA [Suspect]
     Indication: RHEUMATOID ARTHRITIS
     Route: 058
     Dates: start: 20031201, end: 20040414
  2. LEFLUNOMIDE [Suspect]
     Indication: RHEUMATOID ARTHRITIS
     Route: 048
     Dates: start: 20040401
  3. GLUCOCORTICOIDS [Concomitant]
     Indication: RHEUMATOID ARTHRITIS
     Route: 048
  4. ASPIRIN [Concomitant]
     Indication: DRUG USE FOR UNKNOWN INDICATION
     Route: 048
  5. DIPYRONE TAB [Concomitant]
     Indication: DRUG USE FOR UNKNOWN INDICATION
     Route: 048
  6. ESOMEPRAZOLE [Concomitant]
     Indication: DRUG USE FOR UNKNOWN INDICATION
     Route: 048
  7. DIGITOXIN TAB [Concomitant]
     Indication: DRUG USE FOR UNKNOWN INDICATION
     Route: 048
  8. VESDIL PLUS [Concomitant]
     Indication: DRUG USE FOR UNKNOWN INDICATION
     Route: 048
  9. CITALOPRAM [Concomitant]
     Indication: DRUG USE FOR UNKNOWN INDICATION
     Route: 048
  10. CLINDAMYCIN [Concomitant]
     Indication: DRUG USE FOR UNKNOWN INDICATION
     Route: 048
  11. AMLODIPINE BESYLATE [Concomitant]
     Indication: DRUG USE FOR UNKNOWN INDICATION
     Route: 048
  12. ZOKOR [Concomitant]
     Indication: DRUG USE FOR UNKNOWN INDICATION
  13. HEPARIN [Concomitant]
     Indication: DRUG USE FOR UNKNOWN INDICATION
     Route: 058
  14. ALPROSTADIL [Concomitant]
     Indication: DRUG USE FOR UNKNOWN INDICATION
     Dosage: 2 VIALS EVERY DAY

REACTIONS (16)
  - BLISTER [None]
  - CARDIAC FAILURE [None]
  - CELLULITIS GANGRENOUS [None]
  - GENERAL PHYSICAL HEALTH DETERIORATION [None]
  - HYPOKALAEMIA [None]
  - NECROSIS [None]
  - OPEN WOUND [None]
  - OSTEOLYSIS [None]
  - PAIN [None]
  - PROCEDURAL SITE REACTION [None]
  - PROTHROMBIN TIME PROLONGED [None]
  - RECTAL HAEMORRHAGE [None]
  - SEPTIC SHOCK [None]
  - UPPER LIMB FRACTURE [None]
  - VASCULAR PROCEDURE COMPLICATION [None]
  - WRIST FRACTURE [None]
